FAERS Safety Report 4964857-8 (Version None)
Quarter: 2006Q1

REPORT INFORMATION
  Report Type: 
  Country: None (occurrence: None)
  Receive Date: 20060331
  Receipt Date: 20060316
  Transmission Date: 20060701
  Serious: Yes (Hospitalization, Disabling)
  Sender: FDA-Public Use
  Company Number: 384475

PATIENT
  Age: 23 Year
  Sex: Female
  Weight: 29.5 kg

DRUGS (2)
  1. ACCUTANE [Suspect]
     Indication: ACNE CYSTIC
     Dosage: 60 MG DAILY
     Dates: start: 19950929, end: 19960318
  2. BIRTH CONTROL PILLS (ORAL CONTRACEPTIVE NOS) [Concomitant]

REACTIONS (70)
  - ABDOMINAL PAIN UPPER [None]
  - ACNE CYSTIC [None]
  - ALOPECIA EFFLUVIUM [None]
  - ANAEMIA [None]
  - ANOREXIA [None]
  - ARTHRALGIA [None]
  - ARTHRITIS [None]
  - ARTHROPATHY [None]
  - BACK PAIN [None]
  - BACTERIA BLOOD IDENTIFIED [None]
  - BLOOD IRON DECREASED [None]
  - BLOOD POTASSIUM INCREASED [None]
  - BLOOD THYROID STIMULATING HORMONE DECREASED [None]
  - BONE SCAN ABNORMAL [None]
  - CHILLS [None]
  - CHONDROPATHY [None]
  - COLITIS [None]
  - CONDITION AGGRAVATED [None]
  - COUGH [None]
  - CROHN'S DISEASE [None]
  - DRUG EXPOSURE BEFORE PREGNANCY [None]
  - DRUG INEFFECTIVE [None]
  - DYSPEPSIA [None]
  - EAR PAIN [None]
  - ENTEROCOCCAL INFECTION [None]
  - FATIGUE [None]
  - GASTRIC DISORDER [None]
  - GASTROINTESTINAL DISORDER [None]
  - GROIN PAIN [None]
  - HEADACHE [None]
  - INFLAMMATORY BOWEL DISEASE [None]
  - INJURY [None]
  - INTESTINAL FISTULA [None]
  - INTESTINAL HAEMORRHAGE [None]
  - INTESTINAL MASS [None]
  - IRON DEFICIENCY ANAEMIA [None]
  - IRRITABLE BOWEL SYNDROME [None]
  - LYMPHOCYTE COUNT DECREASED [None]
  - MALNUTRITION [None]
  - MULTI-ORGAN DISORDER [None]
  - MUSCLE SPASMS [None]
  - MYALGIA [None]
  - NAUSEA [None]
  - NO THERAPEUTIC RESPONSE [None]
  - OEDEMA PERIPHERAL [None]
  - OSTEOARTHRITIS [None]
  - PAIN IN EXTREMITY [None]
  - PALLOR [None]
  - PALPITATIONS [None]
  - POST INFLAMMATORY PIGMENTATION CHANGE [None]
  - PREGNANCY [None]
  - PRURITUS [None]
  - PYREXIA [None]
  - RECTAL HAEMORRHAGE [None]
  - RED BLOOD CELL SEDIMENTATION RATE INCREASED [None]
  - RHINALGIA [None]
  - SINUSITIS [None]
  - SKIN DISCOLOURATION [None]
  - SKIN LACERATION [None]
  - SKIN PAPILLOMA [None]
  - SPONDYLOARTHROPATHY [None]
  - TELANGIECTASIA [None]
  - THYROXINE INCREASED [None]
  - TRI-IODOTHYRONINE UPTAKE DECREASED [None]
  - URETHRAL CYST [None]
  - VIRAL INFECTION [None]
  - VIRAL UPPER RESPIRATORY TRACT INFECTION [None]
  - VOMITING [None]
  - WEIGHT DECREASED [None]
  - XEROSIS [None]
